FAERS Safety Report 4724603-X (Version None)
Quarter: 2005Q3

REPORT INFORMATION
  Report Type: 
  Country: None (occurrence: None)
  Receive Date: 20050719
  Receipt Date: 20050719
  Transmission Date: 20060218
  Serious: Yes (Other)
  Sender: FDA-Public Use
  Company Number: None

PATIENT
  Age: 45 Year
  Sex: Female
  Weight: 65.7716 kg

DRUGS (1)
  1. NARDIL [Suspect]
     Dosage: 45MGS.   DAILY   ORAL
     Route: 048
     Dates: start: 20001101, end: 20020101

REACTIONS (2)
  - DRUG INEFFECTIVE [None]
  - MAJOR DEPRESSION [None]
